FAERS Safety Report 4787244-4 (Version None)
Quarter: 2005Q3

REPORT INFORMATION
  Report Type: 
  Country: None (occurrence: None)
  Receive Date: 20050930
  Receipt Date: 20050919
  Transmission Date: 20060218
  Serious: Yes (Death, Life-Threatening)
  Sender: FDA-Public Use
  Company Number: HQWYE700504AUG05

PATIENT
  Age: 62 Year
  Sex: Female
  Weight: 67.9 kg

DRUGS (1)
  1. MYLOTARG [Suspect]
     Indication: ACUTE MYELOID LEUKAEMIA
     Dosage: 16  MG 1X PER 1 DAY, INTRAVENOUS
     Route: 042
     Dates: start: 20050629, end: 20050629

REACTIONS (1)
  - EJECTION FRACTION DECREASED [None]
